FAERS Safety Report 21006614 (Version 1)
Quarter: 2022Q2

REPORT INFORMATION
  Report Type: Spontaneous
  Country: GB (occurrence: None)
  Receive Date: 20220625
  Receipt Date: 20220625
  Transmission Date: 20220721
  Serious: Yes (Other)
  Sender: FDA-Public Use
  Company Number: GB-ROCHE-3121555

PATIENT
  Sex: Male

DRUGS (1)
  1. HEMLIBRA [Suspect]
     Active Substance: EMICIZUMAB-KXWH
     Indication: Factor VIII deficiency
     Route: 058

REACTIONS (3)
  - Product storage error [Unknown]
  - Fall [Unknown]
  - Hip fracture [Unknown]

NARRATIVE: CASE EVENT DATE: 20220617
